FAERS Safety Report 9284858 (Version 2)
Quarter: 2013Q3

REPORT INFORMATION
  Report Type: Spontaneous
  Country: US (occurrence: US)
  Receive Date: 20130513
  Receipt Date: 20130802
  Transmission Date: 20140515
  Serious: Yes (Other)
  Sender: FDA-Public Use
  Company Number: US-ROCHE-788226

PATIENT
  Age: 18 Year
  Sex: Male
  Weight: 104.3 kg

DRUGS (5)
  1. ACCUTANE [Suspect]
     Indication: ACNE
     Route: 048
     Dates: start: 20010124, end: 20010630
  2. CONCERTA [Concomitant]
     Indication: ATTENTION DEFICIT/HYPERACTIVITY DISORDER
  3. CLONIDINE [Concomitant]
     Indication: HYPERTENSION
  4. IMIPRAMINE [Concomitant]
     Indication: DEPRESSION
  5. MINOCIN [Concomitant]
     Indication: BACTERIAL INFECTION

REACTIONS (6)
  - Colitis ulcerative [Recovering/Resolving]
  - Rectal polyp [Unknown]
  - Irritable bowel syndrome [Unknown]
  - Blood cholesterol increased [Unknown]
  - Blood triglycerides increased [Unknown]
  - Lip dry [Unknown]
